FAERS Safety Report 9604823 (Version 2)
Quarter: 2013Q4

REPORT INFORMATION
  Report Type: Spontaneous
  Country: DE (occurrence: DE)
  Receive Date: 20131008
  Receipt Date: 20131008
  Transmission Date: 20140711
  Serious: Yes (Other)
  Sender: FDA-Public Use
  Company Number: DE-ROCHE-1272069

PATIENT
  Age: 58 Year
  Sex: Female
  Weight: 102 kg

DRUGS (8)
  1. BONVIVA [Suspect]
     Indication: OSTEOPOROSIS
     Route: 065
     Dates: start: 20130905
  2. NAPROXEN [Concomitant]
     Indication: FIBROMYALGIA
     Route: 065
  3. ISOSORBIDE MONONITRATE [Concomitant]
     Indication: CORONARY ARTERY DISEASE
     Route: 065
  4. DILTIAZEM [Concomitant]
     Indication: CORONARY ARTERY DISEASE
  5. MOLSIDOMIN [Concomitant]
     Indication: CORONARY ARTERY DISEASE
  6. MYDOCALM [Concomitant]
     Indication: FIBROMYALGIA
  7. LYRICA [Concomitant]
     Indication: INTERVERTEBRAL DISC PROTRUSION
  8. MORPHINE [Concomitant]
     Indication: INTERVERTEBRAL DISC PROTRUSION
     Route: 065

REACTIONS (9)
  - Bone pain [Recovered/Resolved]
  - Fatigue [Recovered/Resolved]
  - Influenza like illness [Recovered/Resolved]
  - Diaphragmalgia [Recovered/Resolved]
  - Chills [Recovered/Resolved]
  - Pyrexia [Recovered/Resolved]
  - Respiratory disorder [Recovered/Resolved]
  - Nausea [Recovered/Resolved]
  - Flatulence [Recovered/Resolved]
